FAERS Safety Report 13651685 (Version 1)
Quarter: 2017Q2

REPORT INFORMATION
  Report Type: Spontaneous
  Country: FR (occurrence: FR)
  Receive Date: 20170614
  Receipt Date: 20170614
  Transmission Date: 20170830
  Serious: Yes (Disabling)
  Sender: FDA-Public Use
  Company Number: FR-ASTRAZENECA-2017SE61127

PATIENT
  Age: 736 Month
  Sex: Male

DRUGS (6)
  1. ZOLADEX [Suspect]
     Active Substance: GOSERELIN ACETATE
     Indication: PROSTATE CANCER
     Dosage: 1 IMPLANT EVERY 84 DAYS
     Route: 058
     Dates: start: 20151201
  2. DOLIPRANE [Concomitant]
     Active Substance: ACETAMINOPHEN
     Dosage: IF NEEDED
  3. EDUCTYL [Concomitant]
     Active Substance: POTASSIUM BITARTRATE\SODIUM BICARBONATE
     Dosage: 1 SUPPOSITORY, EVERY MORNING
  4. LOVENOX [Concomitant]
     Active Substance: ENOXAPARIN SODIUM
     Indication: PROPHYLAXIS
     Dosage: 0.4, IN THE EVENING
  5. XATRAL [Concomitant]
     Active Substance: ALFUZOSIN
     Dosage: 10 MG, IN THE EVENING
  6. MOVICOL [Concomitant]
     Active Substance: POLYETHYLENE GLYCOL 3350\POTASSIUM CHLORIDE\SODIUM BICARBONATE\SODIUM CHLORIDE
     Dosage: ON REQUEST

REACTIONS (1)
  - Paraparesis [Not Recovered/Not Resolved]

NARRATIVE: CASE EVENT DATE: 201606
